FAERS Safety Report 9513509 (Version 1)
Quarter: 2013Q3

REPORT INFORMATION
  Report Type: Spontaneous
  Country: US (occurrence: US)
  Receive Date: 20130910
  Receipt Date: 20130910
  Transmission Date: 20140515
  Serious: No
  Sender: FDA-Public Use
  Company Number: US-TARO-2013P1008929

PATIENT
  Age: 70 Year
  Sex: Male
  Weight: 86.18 kg

DRUGS (7)
  1. WARFARIN SODIUM TABLETS USP 5MG [Suspect]
     Indication: ATRIAL FIBRILLATION
     Route: 048
     Dates: start: 201210, end: 20130607
  2. WARFARIN SODIUM TABLETS USP 5MG [Suspect]
     Indication: ATRIAL FIBRILLATION
     Route: 048
     Dates: start: 20130608, end: 20130613
  3. ATORVASTATIN [Concomitant]
     Dates: start: 2012
  4. OMEPRAZOLE [Concomitant]
  5. METOPROLOL TARTRATE [Concomitant]
  6. DILTIAZEM [Concomitant]
  7. MULTIPLE VITAMIN [Concomitant]

REACTIONS (5)
  - International normalised ratio decreased [Recovered/Resolved]
  - Drug ineffective [Recovered/Resolved]
  - Product quality issue [Unknown]
  - Pyrexia [Not Recovered/Not Resolved]
  - Chills [Not Recovered/Not Resolved]
